FAERS Safety Report 7399799-4 (Version None)
Quarter: 2011Q2

REPORT INFORMATION
  Report Type: 
  Country: None (occurrence: None)
  Receive Date: 20110407
  Receipt Date: 20110305
  Transmission Date: 20111010
  Serious: No
  Sender: FDA-Public Use
  Company Number: JP-ROCHE-769070

PATIENT
  Age: 3 Year
  Sex: Female

DRUGS (1)
  1. TAMIFLU [Suspect]
     Dosage: DRUG REPORTED AS: TAMIFLU DRY SYRUP 3%, DOSE: 1.33 G (DIVIDED INTO 2 DOSES) FOR 5 DAYS.
     Route: 048

REACTIONS (1)
  - ACCIDENTAL OVERDOSE [None]
